FAERS Safety Report 8551467-9 (Version None)
Quarter: 2012Q3

REPORT INFORMATION
  Report Type: 
  Country: None (occurrence: None)
  Receive Date: 20120730
  Receipt Date: 20120716
  Transmission Date: 20120928
  Serious: Yes (Hospitalization)
  Sender: FDA-Public Use
  Company Number: FR-ALEXION-A201201379

PATIENT
  Sex: Male
  Weight: 130 kg

DRUGS (2)
  1. SOLIRIS [Suspect]
     Indication: PAROXYSMAL NOCTURNAL HAEMOGLOBINURIA
     Dosage: 900 MG, Q2W
     Route: 042
  2. SOLIRIS [Suspect]
     Dosage: 900 MG, Q 10 DAYS
     Route: 042
     Dates: start: 20111101

REACTIONS (3)
  - HAEMOLYSIS [None]
  - INAPPROPRIATE SCHEDULE OF DRUG ADMINISTRATION [None]
  - BRONCHITIS [None]
